FAERS Safety Report 24561016 (Version 2)
Quarter: 2024Q4

REPORT INFORMATION
  Report Type: Spontaneous
  Country: DE (occurrence: DE)
  Receive Date: 20241029
  Receipt Date: 20241216
  Transmission Date: 20250115
  Serious: Yes (Hospitalization, Other)
  Sender: GALDERMA
  Company Number: None

PATIENT

DRUGS (1)
  1. EPIDUO [Suspect]
     Active Substance: ADAPALENE\BENZOYL PEROXIDE
     Indication: Acne
     Dosage: 1 DOSAGE FORM, APPLICATION OF CREAM ONCE A DAY TO THE AFFECTED AREA, FACE AND NECK
     Route: 061
     Dates: start: 20241013, end: 20241013

REACTIONS (14)
  - Pharyngeal swelling [Unknown]
  - Angioedema [Recovered/Resolved]
  - Dermatitis contact [Recovering/Resolving]
  - Application site swelling [Recovering/Resolving]
  - Application site burn [Recovering/Resolving]
  - Application site vesicles [Recovering/Resolving]
  - Application site pruritus [Recovering/Resolving]
  - Hypersensitivity [Recovering/Resolving]
  - Oral pain [Recovering/Resolving]
  - Dyskinesia [Recovering/Resolving]
  - Oral discomfort [Recovering/Resolving]
  - Oral pruritus [Recovering/Resolving]
  - Erythema [Recovered/Resolved]
  - Type IV hypersensitivity reaction [Unknown]

NARRATIVE: CASE EVENT DATE: 20240101
